FAERS Safety Report 14380521 (Version 1)
Quarter: 2018Q1

REPORT INFORMATION
  Report Type: Spontaneous
  Country: FR (occurrence: FR)
  Receive Date: 20180112
  Receipt Date: 20180112
  Transmission Date: 20180509
  Serious: Yes (Hospitalization)
  Sender: FDA-Public Use
  Company Number: FR-PFIZER INC-2018012646

PATIENT
  Age: 49 Year
  Sex: Female
  Weight: 74 kg

DRUGS (4)
  1. LEVOFOLINATE DE CALCIUM [Suspect]
     Active Substance: LEVOLEUCOVORIN CALCIUM
     Indication: COLORECTAL CANCER
     Dosage: 350 MG, UNK
     Route: 042
     Dates: start: 20171127, end: 20171127
  2. OXALIPLATIN. [Suspect]
     Active Substance: OXALIPLATIN
     Indication: COLORECTAL CANCER
     Dosage: 150 MG, UNK
     Route: 042
     Dates: start: 20171127, end: 20171127
  3. SOLU-MEDROL [Suspect]
     Active Substance: METHYLPREDNISOLONE SODIUM SUCCINATE
     Indication: PREMEDICATION
     Dosage: 60 MG, UNK
     Route: 042
     Dates: start: 20171127, end: 20171127
  4. ZOPHREN /00955301/ [Suspect]
     Active Substance: ONDANSETRON
     Indication: PREMEDICATION
     Dosage: 1 DF, UNK
     Route: 048
     Dates: start: 20171127, end: 20171127

REACTIONS (5)
  - Vomiting [Recovered/Resolved]
  - Rash [Recovered/Resolved]
  - Chills [Recovered/Resolved]
  - Hypersensitivity [Recovered/Resolved]
  - Generalised erythema [Recovered/Resolved]

NARRATIVE: CASE EVENT DATE: 20171127
